FAERS Safety Report 7056135-0 (Version None)
Quarter: 2010Q4

REPORT INFORMATION
  Report Type: 
  Country: None (occurrence: None)
  Receive Date: 20101018
  Receipt Date: 20090819
  Transmission Date: 20110411
  Serious: Yes (Hospitalization, Other)
  Sender: FDA-Public Use
  Company Number: 2009AP003374

PATIENT
  Age: 77 Year
  Sex: Female

DRUGS (7)
  1. DILT-CD [Suspect]
     Indication: ARRHYTHMIA
     Dosage: 180 MG;QD;PO
     Route: 048
     Dates: start: 20090521, end: 20090526
  2. FLECAINIDE ACETATE [Concomitant]
  3. DIGOXIN [Concomitant]
  4. RALOXIFENE HYDROCHLORIDE [Concomitant]
  5. ZOLPIDEM [Concomitant]
  6. CALCIUM WITH VITAMIN D [Concomitant]
  7. MULTI-VITAMINS [Concomitant]

REACTIONS (3)
  - AMNESIA [None]
  - BLOOD PRESSURE DECREASED [None]
  - LOSS OF CONSCIOUSNESS [None]
